FAERS Safety Report 7218406-4 (Version None)
Quarter: 2011Q1

REPORT INFORMATION
  Report Type: 
  Country: None (occurrence: None)
  Receive Date: 20110110
  Receipt Date: 20090804
  Transmission Date: 20110831
  Serious: Yes (Hospitalization, Disabling)
  Sender: FDA-Public Use
  Company Number: PHRM2008FR01315

PATIENT
  Age: 78 Year
  Sex: Female

DRUGS (4)
  1. XANAX [Suspect]
     Route: 048
     Dates: start: 20030101, end: 20080222
  2. SERESTA [Suspect]
     Route: 048
     Dates: start: 20030101, end: 20080222
  3. GLEEVEC [Suspect]
     Indication: GASTROINTESTINAL STROMAL TUMOUR
     Dosage: 400 MG, QD
     Route: 048
     Dates: start: 20070201, end: 20080222
  4. IMODIUM ^JANSSEN-CILAG^ [Concomitant]
     Route: 048
     Dates: start: 20040101, end: 20080222

REACTIONS (7)
  - GENERAL PHYSICAL HEALTH DETERIORATION [None]
  - JAUNDICE [None]
  - GASTROINTESTINAL STROMAL TUMOUR [None]
  - CYTOLYTIC HEPATITIS [None]
  - HEPATIC INFARCTION [None]
  - HEPATIC FIBROSIS [None]
  - HEPATIC FAILURE [None]
